FAERS Safety Report 6130250-8 (Version None)
Quarter: 2009Q1

REPORT INFORMATION
  Report Type: 
  Country: None (occurrence: None)
  Receive Date: 20090324
  Receipt Date: 20090317
  Transmission Date: 20090719
  Serious: Yes (Hospitalization)
  Sender: FDA-Public Use
  Company Number: US-ABBOTT-09P-163-0563256-00

PATIENT
  Sex: Male
  Weight: 89.892 kg

DRUGS (2)
  1. DEPAKOTE [Suspect]
     Indication: CONVULSION
     Dates: start: 19980101
  2. TOPAMAX [Suspect]
     Indication: CONVULSION
     Dates: start: 19980101

REACTIONS (2)
  - ARRHYTHMIA [None]
  - HYPERTENSION [None]
